FAERS Safety Report 19658506 (Version 11)
Quarter: 2022Q4

REPORT INFORMATION
  Report Type: Report from Study
  Country: US (occurrence: US)
  Receive Date: 20210805
  Receipt Date: 20221111
  Transmission Date: 20230112
  Serious: Yes (Death, Life-Threatening, Hospitalization, Other)
  Sender: FDA-Public Use
  Company Number: US-AUROBINDO-AUR-APL-2021-033136

PATIENT
  Age: 76 Year
  Sex: Male
  Weight: 81 kg

DRUGS (9)
  1. BELINOSTAT [Suspect]
     Active Substance: BELINOSTAT
     Indication: Myelodysplastic syndrome
     Dosage: 8000 MILLIGRAM, ONCE A DAY
     Route: 042
     Dates: start: 20200817
  2. BELINOSTAT [Suspect]
     Active Substance: BELINOSTAT
     Dosage: 8000 MILLIGRAM, ONCE A DAY
     Route: 042
     Dates: start: 20200908
  3. BELINOSTAT [Suspect]
     Active Substance: BELINOSTAT
     Dosage: 7800 MILLIGRAM, ONCE A DAY
     Route: 042
     Dates: start: 20200928
  4. BELINOSTAT [Suspect]
     Active Substance: BELINOSTAT
     Dosage: 7760 MILLIGRAM
     Route: 042
     Dates: start: 20201019
  5. BELINOSTAT [Suspect]
     Active Substance: BELINOSTAT
     Dosage: 7760 MILLIGRAM/SQ. METER
     Route: 065
     Dates: start: 20201019
  6. PEVONEDISTAT HYDROCHLORIDE [Suspect]
     Active Substance: PEVONEDISTAT HYDROCHLORIDE
     Indication: Product used for unknown indication
     Dosage: 222 MILLIGRAM, ONCE A DAY
     Route: 042
     Dates: start: 20200817
  7. PEVONEDISTAT HYDROCHLORIDE [Suspect]
     Active Substance: PEVONEDISTAT HYDROCHLORIDE
     Dosage: 222 MILLIGRAM
     Route: 042
     Dates: start: 20200908
  8. PEVONEDISTAT HYDROCHLORIDE [Suspect]
     Active Substance: PEVONEDISTAT HYDROCHLORIDE
     Dosage: 216 MILLIGRAM
     Route: 042
     Dates: start: 20200928
  9. PEVONEDISTAT HYDROCHLORIDE [Suspect]
     Active Substance: PEVONEDISTAT HYDROCHLORIDE
     Dosage: 216 MILLIGRAM
     Route: 042
     Dates: start: 20201019

REACTIONS (17)
  - Death [Fatal]
  - Platelet count decreased [Unknown]
  - White blood cell count increased [Unknown]
  - Febrile neutropenia [Unknown]
  - Anaemia [Unknown]
  - Blood alkaline phosphatase increased [Unknown]
  - Blood bilirubin increased [Unknown]
  - Blood lactate dehydrogenase increased [Unknown]
  - Constipation [Unknown]
  - Dyspnoea [Unknown]
  - Fatigue [Unknown]
  - Hyperglycaemia [Unknown]
  - Hypomagnesaemia [Unknown]
  - Hyponatraemia [Unknown]
  - Neutrophil count decreased [Unknown]
  - White blood cell count decreased [Unknown]
  - Obesity [Unknown]

NARRATIVE: CASE EVENT DATE: 20200817
